FAERS Safety Report 23969303 (Version 3)
Quarter: 2024Q4

REPORT INFORMATION
  Report Type: Spontaneous
  Country: US (occurrence: US)
  Receive Date: 20240612
  Receipt Date: 20241007
  Transmission Date: 20250114
  Serious: No
  Sender: BLUEPRINT MEDICINES
  Company Number: US-Blueprint Medicines Corporation-3850

PATIENT
  Sex: Female

DRUGS (2)
  1. AYVAKIT [Suspect]
     Active Substance: AVAPRITINIB
     Indication: Gastrointestinal stromal tumour
     Route: 048
  2. MELATONIN [Concomitant]
     Active Substance: MELATONIN
     Indication: Product used for unknown indication
     Route: 065

REACTIONS (10)
  - Gait disturbance [Unknown]
  - Pollakiuria [Unknown]
  - Urinary tract infection [Unknown]
  - Abnormal faeces [Not Recovered/Not Resolved]
  - Hair colour changes [Unknown]
  - Lacrimation increased [Unknown]
  - Feeling cold [Not Recovered/Not Resolved]
  - Diarrhoea [Unknown]
  - Abdominal discomfort [Recovered/Resolved]
  - Dental care [Unknown]
